FAERS Safety Report 6437594-0 (Version None)
Quarter: 2009Q4

REPORT INFORMATION
  Report Type: 
  Country: None (occurrence: None)
  Receive Date: 20091109
  Receipt Date: 20091022
  Transmission Date: 20100525
  Serious: Yes (Hospitalization)
  Sender: FDA-Public Use
  Company Number: AUR-APL-2009-01028

PATIENT
  Age: 48 Year
  Sex: Male

DRUGS (4)
  1. ONDANSETRON [Suspect]
     Indication: PROPHYLAXIS OF NAUSEA AND VOMITING
     Dosage: IV
     Route: 042
     Dates: start: 20091013
  2. CISPLATIN [Concomitant]
  3. DEXAMETHASONE [Concomitant]
  4. GEMCITABINE [Concomitant]

REACTIONS (3)
  - MIGRAINE [None]
  - NAUSEA [None]
  - PHOTOPHOBIA [None]
